FAERS Safety Report 21824209 (Version 1)
Quarter: 2023Q1

REPORT INFORMATION
  Report Type: Spontaneous
  Country: US (occurrence: None)
  Receive Date: 20230104
  Receipt Date: 20230104
  Transmission Date: 20230418
  Serious: No
  Sender: FDA-Public Use
  Company Number: None

PATIENT
  Age: 74 Year
  Sex: Male
  Weight: 136.21 kg

DRUGS (27)
  1. LENALIDOMIDE [Suspect]
     Active Substance: LENALIDOMIDE
     Indication: Plasma cell myeloma
     Dosage: OTHER FREQUENCY : 21D Q28DAYS;?
     Route: 048
  2. ACYCLOVIR [Concomitant]
     Active Substance: ACYCLOVIR
  3. ALEVE [Concomitant]
     Active Substance: NAPROXEN SODIUM
  4. ALLOPURINOL [Concomitant]
     Active Substance: ALLOPURINOL
  5. ALPRAZOLAM [Concomitant]
     Active Substance: ALPRAZOLAM
  6. AMLODIPINE [Concomitant]
     Active Substance: AMLODIPINE BESYLATE
  7. ASPIRIN [Concomitant]
     Active Substance: ASPIRIN
  8. CELEREY SEED EXTRACT [Concomitant]
  9. CHERRY EXTRACT [Concomitant]
     Active Substance: CHERRY EXTRACT
  10. CRANBERRY [Concomitant]
     Active Substance: CRANBERRY
  11. DEXAMETHASONE [Concomitant]
     Active Substance: DEXAMETHASONE
  12. FAMOTIDINE [Concomitant]
     Active Substance: FAMOTIDINE
  13. FUROSEMIDE [Concomitant]
     Active Substance: FUROSEMIDE
  14. LEVOTHYROXINE [Concomitant]
     Active Substance: LEVOTHYROXINE
  15. MELATONIN [Concomitant]
     Active Substance: MELATONIN
  16. OCUVITE [Concomitant]
     Active Substance: VITAMINS
  17. ONDANSETRON [Concomitant]
  18. OSTEO BI FLEX [Concomitant]
  19. POTASSIUM CHLORIDE [Concomitant]
     Active Substance: POTASSIUM CHLORIDE
  20. PROCHLORPERAZINE [Concomitant]
     Active Substance: PROCHLORPERAZINE
  21. TUMS [Concomitant]
  22. VALERIAN [Concomitant]
     Active Substance: VALERIAN
  23. VELCADE [Concomitant]
     Active Substance: BORTEZOMIB
  24. VITAMIN B6 [Concomitant]
     Active Substance: PYRIDOXINE HYDROCHLORIDE
  25. VITAMIN C [Concomitant]
     Active Substance: ASCORBIC ACID
  26. VITAMIN D3 [Concomitant]
     Active Substance: CHOLECALCIFEROL
  27. ZYRTEC [Concomitant]
     Active Substance: CETIRIZINE HYDROCHLORIDE

REACTIONS (1)
  - Platelet count decreased [None]
